FAERS Safety Report 7864563-6 (Version None)
Quarter: 2011Q4

REPORT INFORMATION
  Report Type: 
  Country: None (occurrence: None)
  Receive Date: 20111028
  Receipt Date: 20111024
  Transmission Date: 20120403
  Serious: No
  Sender: FDA-Public Use
  Company Number: US-PFIZER INC-2011258408

PATIENT
  Sex: Female
  Weight: 76.6 kg

DRUGS (10)
  1. XALKORI [Suspect]
     Indication: LUNG NEOPLASM MALIGNANT
     Dosage: 250 MG, 2X/DAY
     Route: 048
     Dates: start: 20110901
  2. FISH OIL [Concomitant]
     Dosage: UNK
  3. VITAMIN D [Concomitant]
     Dosage: UNK
  4. ARIMIDEX [Concomitant]
     Indication: BREAST CANCER
     Dosage: UNK
  5. MIRALAX [Concomitant]
     Indication: GASTROINTESTINAL DISORDER
     Dosage: UNK
  6. DOCUSATE [Concomitant]
     Indication: GASTROINTESTINAL DISORDER
     Dosage: UNK
  7. CALCIUM [Concomitant]
     Dosage: UNK
  8. VITAMIN B COMPLEX CAP [Concomitant]
     Dosage: UNK
  9. KEPPRA [Concomitant]
     Indication: CONVULSION
     Dosage: UNK
  10. FLAXSEED OIL [Concomitant]
     Dosage: UNK

REACTIONS (1)
  - DRY SKIN [None]
